FAERS Safety Report 4348995-9 (Version None)
Quarter: 2004Q2

REPORT INFORMATION
  Report Type: 
  Country: None (occurrence: None)
  Receive Date: 20040423
  Receipt Date: 20040416
  Transmission Date: 20050107
  Serious: Yes (Death)
  Sender: FDA-Public Use
  Company Number: USA-2003-0011299

PATIENT
  Age: 52 Year
  Sex: Male
  Weight: 79.4 kg

DRUGS (2)
  1. MORPHINE SULFATE [Suspect]
  2. METRONIDAZOLE [Suspect]

REACTIONS (4)
  - ATHEROSCLEROSIS [None]
  - INTRA-ABDOMINAL HAEMORRHAGE [None]
  - LIVER CARCINOMA RUPTURED [None]
  - TOXICOLOGIC TEST ABNORMAL [None]
